FAERS Safety Report 20584641 (Version 2)
Quarter: 2022Q3

REPORT INFORMATION
  Report Type: Spontaneous
  Country: DE (occurrence: DE)
  Receive Date: 20220311
  Receipt Date: 20220716
  Transmission Date: 20221026
  Serious: Yes (Death)
  Sender: FDA-Public Use
  Company Number: DE-TEVA-2022-DE-2014747

PATIENT
  Age: 24 Year
  Sex: Male

DRUGS (3)
  1. FENTANYL [Suspect]
     Active Substance: FENTANYL
     Indication: Product used for unknown indication
     Dosage: 50 MCG/HR MATRIXPFLASTER
     Route: 065
  2. FENTANYL [Suspect]
     Active Substance: FENTANYL
     Dosage: 75 MIKROGRAMM/H
     Route: 065
  3. FENTANYL [Suspect]
     Active Substance: FENTANYL
     Indication: Product used for unknown indication
     Dosage: 75 MIKROGRAMM/H TRANSDERMALES PFLASTER
     Route: 065

REACTIONS (2)
  - Drug abuse [Fatal]
  - Prescription drug used without a prescription [Fatal]
